FAERS Safety Report 11124144 (Version 3)
Quarter: 2015Q2

REPORT INFORMATION
  Report Type: Spontaneous
  Country: GB (occurrence: GB)
  Receive Date: 20150520
  Receipt Date: 20150530
  Transmission Date: 20150821
  Serious: Yes (Other)
  Sender: FDA-Public Use
  Company Number: GB-AUROBINDO-AUR-APL-2015-04348

PATIENT
  Sex: Male
  Weight: 2.72 kg

DRUGS (1)
  1. FLUOXETINE 60MG [Suspect]
     Active Substance: FLUOXETINE HYDROCHLORIDE
     Indication: PRODUCT USED FOR UNKNOWN INDICATION
     Dosage: 60 MG, DAILY
     Route: 063

REACTIONS (13)
  - Condition aggravated [Recovered/Resolved]
  - Toxicity to various agents [Recovered/Resolved]
  - Hyperreflexia [Recovered/Resolved]
  - Dyskinesia [Recovered/Resolved]
  - Tachypnoea [Recovered/Resolved]
  - Pyrexia [Recovered/Resolved]
  - Irritability [Recovered/Resolved]
  - Serotonin syndrome [Recovered/Resolved]
  - Premature baby [Recovered/Resolved]
  - Feeling jittery [Recovered/Resolved]
  - Exposure during breast feeding [Recovered/Resolved]
  - Metabolic acidosis [Recovered/Resolved]
  - Hypertonia neonatal [Recovered/Resolved]
